FAERS Safety Report 13132876 (Version 3)
Quarter: 2017Q2

REPORT INFORMATION
  Report Type: Spontaneous
  Country: US (occurrence: US)
  Receive Date: 20170120
  Receipt Date: 20170413
  Transmission Date: 20170830
  Serious: Yes (Hospitalization, Other)
  Sender: FDA-Public Use
  Company Number: US-SUN PHARMACEUTICAL INDUSTRIES LTD-2017US-131786

PATIENT
  Age: 51 Year
  Sex: Male

DRUGS (5)
  1. LEUPROLIDE [Suspect]
     Active Substance: LEUPROLIDE
     Indication: PROSTATE CANCER METASTATIC
     Dosage: UNK
     Route: 065
  2. LEUPROLIDE [Suspect]
     Active Substance: LEUPROLIDE
     Indication: METASTASES TO BONE
  3. BICALUTAMIDE. [Suspect]
     Active Substance: BICALUTAMIDE
     Indication: PROSTATE CANCER METASTATIC
     Route: 065
  4. BICALUTAMIDE. [Suspect]
     Active Substance: BICALUTAMIDE
     Indication: METASTASES TO BONE
  5. BICALUTAMIDE. [Suspect]
     Active Substance: BICALUTAMIDE
     Indication: PROSTATE CANCER METASTATIC

REACTIONS (1)
  - Ectopic ACTH syndrome [Recovering/Resolving]
